FAERS Safety Report 8202266-9 (Version None)
Quarter: 2012Q1

REPORT INFORMATION
  Report Type: 
  Country: None (occurrence: None)
  Receive Date: 20120312
  Receipt Date: 20120131
  Transmission Date: 20120608
  Serious: Yes (Other)
  Sender: FDA-Public Use
  Company Number: GB-BAYER-2012-020488

PATIENT
  Sex: Female

DRUGS (1)
  1. YASMIN [Suspect]
     Indication: ORAL CONTRACEPTION
     Dosage: UNK
     Route: 048

REACTIONS (1)
  - CANDIDIASIS [None]
